FAERS Safety Report 25217187 (Version 2)
Quarter: 2025Q2

REPORT INFORMATION
  Report Type: Spontaneous
  Country: US (occurrence: US)
  Receive Date: 20250419
  Receipt Date: 20250428
  Transmission Date: 20250716
  Serious: Yes (Life-Threatening, Hospitalization, Other)
  Sender: TEVA
  Company Number: US-TEVA-VS-3322928

PATIENT
  Age: 63 Year
  Sex: Male

DRUGS (1)
  1. PANTOPRAZOLE [Suspect]
     Active Substance: PANTOPRAZOLE
     Indication: Diverticulum intestinal
     Route: 048

REACTIONS (6)
  - Anaphylactic reaction [Unknown]
  - Tachycardia [Unknown]
  - Periorbital swelling [Unknown]
  - Mouth swelling [Unknown]
  - Dyspnoea [Unknown]
  - Dysphonia [Unknown]
